FAERS Safety Report 10718196 (Version 5)
Quarter: 2015Q1

REPORT INFORMATION
  Report Type: Report from Study
  Country: BE (occurrence: BE)
  Receive Date: 20150118
  Receipt Date: 20150327
  Transmission Date: 20150721
  Serious: Yes (Death, Hospitalization)
  Sender: FDA-Public Use
  Company Number: BE-ABBVIE-15P-013-1329655-00

PATIENT
  Sex: Male

DRUGS (7)
  1. DUODOPA [Suspect]
     Active Substance: CARBIDOPA\LEVODOPA
     Dosage: MD: 9ML, CD: 3ML/H DURING 16HRS, ED:  2ML
     Route: 050
     Dates: start: 20141201, end: 20141219
  2. DUODOPA [Suspect]
     Active Substance: CARBIDOPA\LEVODOPA
     Dosage: AM DOSE= 10ML, CONTIN DOSE= 3ML/H DURING 16HRS, EXTRA DOSE= 3ML
     Route: 050
     Dates: start: 20150120, end: 20150122
  3. DUODOPA [Suspect]
     Active Substance: CARBIDOPA\LEVODOPA
     Dosage: MD: 9ML, CD: 3ML/H DURING 16HRS, ED: 2ML, DOSAGE CONTINUOUSLY MONITORED AND ADJUSTED
     Route: 050
     Dates: start: 20091211, end: 20141201
  4. DUODOPA [Suspect]
     Active Substance: CARBIDOPA\LEVODOPA
     Dosage: MD: 9ML, CD: 2.8ML/H DURING 16HRS, ED: 3 ML
     Route: 050
     Dates: start: 20141219, end: 20150120
  5. DUODOPA [Suspect]
     Active Substance: CARBIDOPA\LEVODOPA
     Dosage: AM 10ML, CD 3.2ML/H FOR 16 HRS, ED 3ML
     Route: 050
     Dates: start: 20150122
  6. LEVODOPA/BENSERAZIDE [Concomitant]
     Active Substance: BENSERAZIDE\LEVODOPA
     Indication: PARKINSON^S DISEASE
     Dosage: EMERGENCY MEDICATION WHEN NEEDED
     Route: 048
  7. DUODOPA [Suspect]
     Active Substance: CARBIDOPA\LEVODOPA
     Indication: PARKINSON^S DISEASE
     Dosage: MD: 4ML, CD: 1.7ML/H DURING 16HRS, EXTRA DOSE: 2 ML
     Route: 050
     Dates: start: 20090616, end: 20091211

REACTIONS (7)
  - General physical health deterioration [Unknown]
  - International normalised ratio fluctuation [Recovering/Resolving]
  - C-reactive protein increased [Recovering/Resolving]
  - Haematemesis [Unknown]
  - Death [Fatal]
  - Subdural haematoma [Recovering/Resolving]
  - Infection [Recovering/Resolving]
